FAERS Safety Report 12342422 (Version 2)
Quarter: 2016Q2

REPORT INFORMATION
  Report Type: Spontaneous
  Country: BR (occurrence: BR)
  Receive Date: 20160506
  Receipt Date: 20160622
  Transmission Date: 20160815
  Serious: Yes (Hospitalization)
  Sender: FDA-Public Use
  Company Number: BR-PFIZER INC-2016245291

PATIENT
  Age: 79 Year
  Sex: Female

DRUGS (13)
  1. AMIODARONE HYDROCHLORIDE. [Concomitant]
     Active Substance: AMIODARONE HYDROCHLORIDE
     Indication: ANTICOAGULANT THERAPY
     Dosage: 1 DF, DAILY
     Route: 048
     Dates: start: 201604
  2. MANIVASC [Concomitant]
     Active Substance: MANIDIPINE HYDROCHLORIDE
     Dosage: UNK, AT NIGHT
  3. OLMESARTAN [Concomitant]
     Active Substance: OLMESARTAN
     Indication: HYPERTENSION
     Dosage: 1 DF, 1 TABLET A DAY
     Route: 048
     Dates: start: 2008
  4. VITAMIN C [Concomitant]
     Active Substance: ASCORBIC ACID
     Dosage: 1 DF, 1 TABLET A DAY
     Route: 048
     Dates: start: 1996
  5. B COMPLEX /00322001/ [Concomitant]
     Dosage: 1 DF, 1 ATBLET A DAY
     Route: 048
     Dates: start: 1996
  6. FRONTAL [Suspect]
     Active Substance: ALPRAZOLAM
     Indication: SLEEP DISORDER
     Dosage: 0.5 MG, DAILY
     Route: 048
     Dates: start: 2014
  7. LIPITOR [Suspect]
     Active Substance: ATORVASTATIN CALCIUM
     Indication: CORONARY ARTERY OCCLUSION
     Dosage: 10 MG, 1 TABLET A DAY
     Route: 048
     Dates: start: 2011
  8. SPIRONOLACTONE. [Concomitant]
     Active Substance: SPIRONOLACTONE
     Indication: BLOOD PRESSURE MEASUREMENT
     Dosage: 25 MG, 1 TABLET A DAY
     Route: 048
     Dates: start: 2010
  9. CALCIUM [Concomitant]
     Active Substance: CALCIUM
     Dosage: 1 DF, 1 TABLET A DAY
     Route: 048
     Dates: start: 1996
  10. IRON [Concomitant]
     Active Substance: IRON
     Dosage: 1 DF, 1 TABLET A DAY
     Route: 048
     Dates: start: 1996
  11. HYDROCHLOROTHIAZIDE. [Concomitant]
     Active Substance: HYDROCHLOROTHIAZIDE
     Dosage: UNK
  12. TRIFLEX /01550301/ [Concomitant]
     Indication: JOINT SWELLING
     Dosage: 2 DF, DAILY
     Route: 048
     Dates: start: 1996
  13. ALENIA /01538101/ [Concomitant]
     Active Substance: BUDESONIDE\FORMOTEROL FUMARATE
     Indication: ASTHMA
     Dosage: UNK

REACTIONS (1)
  - Heart rate increased [Recovered/Resolved]

NARRATIVE: CASE EVENT DATE: 201605
